FAERS Safety Report 22053512 (Version 1)
Quarter: 2023Q1

REPORT INFORMATION
  Report Type: Spontaneous
  Country: IE (occurrence: IE)
  Receive Date: 20230302
  Receipt Date: 20230302
  Transmission Date: 20230417
  Serious: Yes (Hospitalization)
  Sender: FDA-Public Use
  Company Number: IE-BAXTER-2023BAX011032

PATIENT
  Age: 13 Year
  Sex: Female

DRUGS (3)
  1. DEFEROXAMINE [Suspect]
     Active Substance: DEFEROXAMINE MESYLATE
     Indication: Product used for unknown indication
     Dosage: 2400 MG IN WATER FOR INJECTION AND 47 ML SODIUM CHLORIDE AT UNSPECIFIED FREQUENCY IN SV5 (HOME 11635
     Route: 065
  2. SODIUM CHLORIDE [Suspect]
     Active Substance: SODIUM CHLORIDE
     Indication: Medication dilution
     Dosage: 47 ML AT UNSPECIFIED FREQUENCY
     Route: 065
  3. WATER [Suspect]
     Active Substance: WATER
     Indication: Medication dilution
     Dosage: UNK (PH. EUR.VIAFLO CONTAINER)
     Route: 065

REACTIONS (2)
  - Malaise [Unknown]
  - Vomiting [Unknown]

NARRATIVE: CASE EVENT DATE: 20230101
